FAERS Safety Report 7465123-1 (Version None)
Quarter: 2011Q2

REPORT INFORMATION
  Report Type: 
  Country: None (occurrence: None)
  Receive Date: 20110509
  Receipt Date: 20110426
  Transmission Date: 20111010
  Serious: Yes (Other)
  Sender: FDA-Public Use
  Company Number: MX-SANOFI-AVENTIS-2011SA025914

PATIENT
  Age: 68 Year
  Sex: Female

DRUGS (2)
  1. LEFLUNOMIDE [Suspect]
     Indication: RHEUMATOID ARTHRITIS
     Route: 048
     Dates: start: 19950101, end: 20050101
  2. LEFLUNOMIDE [Suspect]
     Route: 048
     Dates: start: 20060101

REACTIONS (3)
  - BREAST CANCER [None]
  - CATARACT OPERATION [None]
  - SURGERY [None]
